FAERS Safety Report 8373452 (Version 2)
Quarter: 2013Q1

REPORT INFORMATION
  Report Type: Report from Study
  Country: PR (occurrence: PR)
  Receive Date: 20120128
  Receipt Date: 20130129
  Transmission Date: 20140127
  Serious: No
  Sender: FDA-Public Use
  Company Number: PR-ABBOTT-11P-131-0868933-00

PATIENT
  Age: 51 Year
  Sex: Female
  Weight: 76.73 kg

DRUGS (7)
  1. HUMIRA 40 MG/0.8 ML PEN [Suspect]
     Indication: RHEUMATOID ARTHRITIS
     Route: 058
     Dates: start: 2009
  2. FOLIC ACID [Concomitant]
     Indication: RHEUMATOID ARTHRITIS
     Dosage: 1 TABLET DAILY
     Route: 048
  3. METHOTREXATE [Concomitant]
     Indication: RHEUMATOID ARTHRITIS
     Dosage: 4 TABLETS EVERY MONDAYS
     Route: 048
  4. CALAFLAM [Concomitant]
     Indication: INTERVERTEBRAL DISC DISORDER
     Dosage: 1 TABLET DAILY
     Route: 048
  5. UNKNOWN [Concomitant]
     Indication: HYPERTENSION
     Dosage: 1 TABLET DAILY
     Route: 048
  6. UNKNOWN [Concomitant]
     Indication: RESPIRATORY TRACT CONGESTION
     Dosage: 1 TABLET BID
     Route: 048
  7. PREDNISONE [Concomitant]
     Indication: PAIN
     Dosage: 3 TABLETS PRN FOR PAIN
     Route: 048

REACTIONS (4)
  - Injection site abscess [Unknown]
  - Injection site reaction [Recovered/Resolved]
  - Injection site reaction [Recovered/Resolved]
  - Injection site reaction [Recovered/Resolved]
